FAERS Safety Report 4379957-3 (Version None)
Quarter: 2004Q2

REPORT INFORMATION
  Report Type: 
  Country: None (occurrence: None)
  Receive Date: 20040614
  Receipt Date: 20040602
  Transmission Date: 20050107
  Serious: Yes (Hospitalization)
  Sender: FDA-Public Use
  Company Number: 04P-013-0263351-00

PATIENT
  Age: 68 Year

DRUGS (4)
  1. KALETRA [Suspect]
     Indication: HIV INFECTION
     Dosage: SEE IMAGE
     Dates: start: 20030801, end: 20031201
  2. KALETRA [Suspect]
     Indication: HIV INFECTION
     Dosage: SEE IMAGE
     Dates: start: 20040122
  3. DIDANOSINE [Concomitant]
  4. TENOFOVIR [Concomitant]

REACTIONS (3)
  - FEELING ABNORMAL [None]
  - GENERAL PHYSICAL HEALTH DETERIORATION [None]
  - LOBAR PNEUMONIA [None]
